FAERS Safety Report 25731259 (Version 1)
Quarter: 2025Q3

REPORT INFORMATION
  Report Type: Report from Study
  Country: US (occurrence: US)
  Receive Date: 20250827
  Receipt Date: 20250827
  Transmission Date: 20251020
  Serious: No
  Sender: Karo Pharma
  Company Number: US-Karo Pharma-2183304

PATIENT
  Age: 47 Year
  Sex: Female

DRUGS (1)
  1. LAMISIL [Suspect]
     Active Substance: TERBINAFINE HYDROCHLORIDE
     Indication: Fungal infection

REACTIONS (1)
  - Therapeutic product effect delayed [Unknown]
